FAERS Safety Report 12136389 (Version 1)
Quarter: 2016Q1

REPORT INFORMATION
  Report Type: Spontaneous
  Country: US (occurrence: None)
  Receive Date: 20160301
  Receipt Date: 20160301
  Transmission Date: 20160526
  Serious: Yes (Other)
  Sender: FDA-Public Use
  Company Number: None

PATIENT
  Age: 65 Year
  Sex: Female
  Weight: 108.86 kg

DRUGS (1)
  1. MELLARIL [Suspect]
     Active Substance: THIORIDAZINE HYDROCHLORIDE
     Indication: MENTAL DISORDER
     Dosage: 2 TABLET TOO TAKE ONCE BEDTIME
     Route: 048
     Dates: start: 19800610

REACTIONS (3)
  - Product quality issue [None]
  - Drug dispensing error [None]
  - Product substitution issue [None]

NARRATIVE: CASE EVENT DATE: 2014
